FAERS Safety Report 7621989-3 (Version None)
Quarter: 2011Q3

REPORT INFORMATION
  Report Type: 
  Country: None (occurrence: None)
  Receive Date: 20110720
  Receipt Date: 20110526
  Transmission Date: 20111222
  Serious: Yes (Hospitalization)
  Sender: FDA-Public Use
  Company Number: SG-BAYER-2011-046067

PATIENT
  Age: 85 Year
  Sex: Female

DRUGS (3)
  1. CEFTRIAXONE [Suspect]
  2. METRONIDAZOLE [Suspect]
  3. CIPROFLOXACIN HCL [Suspect]

REACTIONS (1)
  - RASH MACULO-PAPULAR [None]
